FAERS Safety Report 8335246-3 (Version None)
Quarter: 2012Q2

REPORT INFORMATION
  Report Type: 
  Country: None (occurrence: None)
  Receive Date: 20120503
  Receipt Date: 20120424
  Transmission Date: 20120825
  Serious: Yes (Other)
  Sender: FDA-Public Use
  Company Number: US-ROCHE-1035823

PATIENT
  Sex: Female
  Weight: 74.91 kg

DRUGS (2)
  1. ACCUTANE [Suspect]
     Dates: start: 19970512, end: 19971101
  2. ACCUTANE [Suspect]
     Indication: ACNE
     Dates: start: 19950101

REACTIONS (3)
  - ANXIETY [None]
  - INFLAMMATORY BOWEL DISEASE [None]
  - PROCTITIS ULCERATIVE [None]
